FAERS Safety Report 5161189-2 (Version None)
Quarter: 2006Q4

REPORT INFORMATION
  Report Type: 
  Country: None (occurrence: None)
  Receive Date: 20061130
  Receipt Date: 20060802
  Transmission Date: 20070319
  Serious: Yes (Life-Threatening)
  Sender: FDA-Public Use
  Company Number: US-BRISTOL-MYERS SQUIBB COMPANY-13467360

PATIENT
  Age: 62 Year
  Sex: Male

DRUGS (9)
  1. ERBITUX [Suspect]
     Indication: COLON CANCER METASTATIC
     Route: 042
     Dates: start: 20060731
  2. HEXADROL [Concomitant]
     Indication: PREMEDICATION
     Route: 042
     Dates: start: 20060731
  3. ALOXI [Concomitant]
     Indication: PREMEDICATION
     Route: 042
     Dates: start: 20060731
  4. BENADRYL [Concomitant]
     Indication: PREMEDICATION
     Route: 042
     Dates: start: 20060731
  5. BENICAR HCT [Concomitant]
     Dosage: 40/12.5 MG
  6. METOPROLOL SUCCINATE [Concomitant]
  7. AMIODARONE HCL [Concomitant]
  8. DOXAZOSIN MESYLATE [Concomitant]
  9. ASPIRIN [Concomitant]

REACTIONS (1)
  - INFUSION RELATED REACTION [None]
